FAERS Safety Report 4953004-4 (Version None)
Quarter: 2006Q1

REPORT INFORMATION
  Report Type: 
  Country: None (occurrence: None)
  Receive Date: 20060324
  Receipt Date: 20060322
  Transmission Date: 20060701
  Serious: Yes (Disabling)
  Sender: FDA-Public Use
  Company Number: US-GLAXOSMITHKLINE-A0598596A

PATIENT
  Age: 97 Year
  Sex: Female
  Weight: 44.1 kg

DRUGS (4)
  1. VALTREX [Suspect]
     Dosage: 1G THREE TIMES PER DAY
     Route: 048
     Dates: start: 20060311, end: 20060316
  2. AVAPRO [Concomitant]
  3. EYE DROPS [Concomitant]
  4. DARVOCET-N 100 [Concomitant]
     Dates: end: 20060312

REACTIONS (15)
  - AGGRESSION [None]
  - AGITATION [None]
  - ANOREXIA [None]
  - APHASIA [None]
  - DIZZINESS [None]
  - ENCEPHALOPATHY [None]
  - HALLUCINATION, VISUAL [None]
  - INCORRECT DOSE ADMINISTERED [None]
  - LETHARGY [None]
  - MENTAL STATUS CHANGES [None]
  - OLIGODIPSIA [None]
  - SOMNOLENCE [None]
  - SPEECH DISORDER [None]
  - TREMOR [None]
  - VISUAL DISTURBANCE [None]
